FAERS Safety Report 4401975-7 (Version None)
Quarter: 2004Q3

REPORT INFORMATION
  Report Type: 
  Country: None (occurrence: None)
  Receive Date: 20040714
  Receipt Date: 20040630
  Transmission Date: 20050211
  Serious: Yes (Other)
  Sender: FDA-Public Use
  Company Number: USA030433957

PATIENT
  Age: 13 Year
  Sex: Male
  Weight: 52 kg

DRUGS (4)
  1. STRATTERA [Suspect]
     Dosage: 60 MG/DAY
     Dates: start: 20030327, end: 20030331
  2. ALBUTEROL [Concomitant]
  3. ALLERGY SHOT [Concomitant]
  4. FLOVENT 9FLUTICASONE PROPIONATE) [Concomitant]

REACTIONS (7)
  - BLOOD ALKALINE PHOSPHATASE INCREASED [None]
  - BLOOD BILIRUBIN INCREASED [None]
  - DECREASED APPETITE [None]
  - FATIGUE [None]
  - MYDRIASIS [None]
  - OCULAR ICTERUS [None]
  - SOMNOLENCE [None]
